FAERS Safety Report 4758413-4 (Version None)
Quarter: 2005Q3

REPORT INFORMATION
  Report Type: 
  Country: None (occurrence: None)
  Receive Date: 20050830
  Receipt Date: 20050830
  Transmission Date: 20060218
  Serious: No
  Sender: FDA-Public Use
  Company Number: None

PATIENT
  Sex: Female
  Weight: 93.8946 kg

DRUGS (8)
  1. SEROQUEL [Suspect]
     Indication: INTERMITTENT EXPLOSIVE DISORDER
     Dates: start: 20050704, end: 20050706
  2. SEROQUEL [Suspect]
     Indication: INTERMITTENT EXPLOSIVE DISORDER
     Dosage: (TAPERED DOWN THRU 7/16/05)
     Dates: start: 20050706, end: 20050708
  3. VALTREX [Concomitant]
  4. ALLEGRA [Concomitant]
  5. EFFEXOR XR [Concomitant]
  6. ESKALITH CR [Concomitant]
  7. BUSPAR [Concomitant]
  8. DEPO-PROVERA [Concomitant]

REACTIONS (1)
  - LACTATION DISORDER [None]
